FAERS Safety Report 25448389 (Version 1)
Quarter: 2025Q2

REPORT INFORMATION
  Report Type: Report from Study
  Country: CO (occurrence: CO)
  Receive Date: 20250617
  Receipt Date: 20250617
  Transmission Date: 20250716
  Serious: Yes (Death)
  Sender: ABBVIE
  Company Number: CO-ABBVIE-6325077

PATIENT
  Age: 72 Year
  Sex: Male

DRUGS (1)
  1. VENCLEXTA [Suspect]
     Active Substance: VENETOCLAX
     Indication: Acute myeloid leukaemia
     Dosage: VENCLEXTA VIAL 100MG
     Route: 048
     Dates: start: 20250508, end: 20250514

REACTIONS (2)
  - Death [Fatal]
  - Fatigue [Unknown]

NARRATIVE: CASE EVENT DATE: 20250602
